FAERS Safety Report 18177300 (Version 1)
Quarter: 2020Q3

REPORT INFORMATION
  Report Type: Spontaneous
  Country: DE (occurrence: DE)
  Receive Date: 20200821
  Receipt Date: 20200821
  Transmission Date: 20201103
  Serious: Yes (Hospitalization)
  Sender: FDA-Public Use
  Company Number: DE-TEVA-2020-DE-1815581

PATIENT
  Age: 75 Year
  Sex: Male

DRUGS (15)
  1. SPIRIVA RESPIMAT 2,5MIKROGRAMM [Concomitant]
     Dosage: 2 DOSAGE FORMS DAILY; 2.5 MG, 2?0?0?0
     Route: 055
  2. CLOPIDOGREL [Suspect]
     Active Substance: CLOPIDOGREL BISULFATE
     Dosage: 75 MILLIGRAM DAILY; 0?0?1?0
     Route: 048
  3. ATORVASTATIN [Concomitant]
     Active Substance: ATORVASTATIN
     Dosage: 20 MILLIGRAM DAILY;  0?0?1?0
     Route: 048
  4. TAMSULOSIN [Concomitant]
     Active Substance: TAMSULOSIN
     Dosage: .4 MILLIGRAM DAILY;  0?1?0?0
     Route: 048
  5. PANTOPRAZOL [Concomitant]
     Active Substance: PANTOPRAZOLE SODIUM
     Dosage: 40 MILLIGRAM DAILY; 1?0?0?0
     Route: 048
  6. NALOXON/TILIDIN [Concomitant]
     Dosage: 2 DOSAGE FORMS DAILY; 4|50 MG, 1?0?1?0
     Route: 048
  7. TORASEMID [Suspect]
     Active Substance: TORSEMIDE
     Dosage: 10 MILLIGRAM DAILY; 1?0?0?0
     Route: 048
  8. MIRTAZAPIN [Concomitant]
     Active Substance: MIRTAZAPINE
     Dosage: 15 MILLIGRAM DAILY;  0?0?1?0
     Route: 048
  9. MOVICOL [Concomitant]
     Active Substance: POLYETHYLENE GLYCOL 3350\POTASSIUM CHLORIDE\SODIUM BICARBONATE\SODIUM CHLORIDE
     Dosage: 1 DOSAGE FORMS DAILY; NK MG, 1?0?0?0
     Route: 048
  10. COLECALCIFEROL (VITAMIN D) [Concomitant]
     Dosage: 20,000 IU / WEEK, 1X
     Route: 048
  11. ACETYLSALICYLSAURE [Suspect]
     Active Substance: ASPIRIN
     Dosage: 100 MILLIGRAM DAILY; 0?1?0?0
     Route: 048
  12. JANUMET [Suspect]
     Active Substance: METFORMIN HYDROCHLORIDE\SITAGLIPTIN PHOSPHATE
     Dosage: 2 DOSAGE FORMS DAILY; 1000|50 MG, 1?0?1?0
     Route: 048
  13. BERODUAL N [Concomitant]
     Active Substance: FENOTEROL HYDROBROMIDE\IPRATROPIUM BROMIDE
     Dosage: NK MG, 2X,
     Route: 055
  14. METAMIZOL [Concomitant]
     Active Substance: METAMIZOLE SODIUM
     Dosage: NK MG, 3X, DROPS
     Route: 048
  15. APIXABAN [Suspect]
     Active Substance: APIXABAN
     Dosage: 5 MILLIGRAM DAILY; 1?0?1?0
     Route: 048

REACTIONS (4)
  - Pain [Unknown]
  - Musculoskeletal pain [Unknown]
  - Haemorrhage [Unknown]
  - Pain in extremity [Unknown]
